FAERS Safety Report 19818559 (Version 1)
Quarter: 2021Q3

REPORT INFORMATION
  Report Type: Spontaneous
  Country: CA (occurrence: CA)
  Receive Date: 20210912
  Receipt Date: 20210912
  Transmission Date: 20211014
  Serious: Yes (Hospitalization)
  Sender: FDA-Public Use
  Company Number: CA-TEVA-2021-CA-1950933

PATIENT
  Age: 3 Year
  Sex: Male
  Weight: 15 kg

DRUGS (45)
  1. THIOTEPA. [Suspect]
     Active Substance: THIOTEPA
     Indication: TRANSPLANT
     Route: 042
  2. FAMOTIDINE. [Concomitant]
     Active Substance: FAMOTIDINE
  3. CARDENE [Concomitant]
     Active Substance: NICARDIPINE HYDROCHLORIDE
  4. CETIRIZINE [Concomitant]
     Active Substance: CETIRIZINE HYDROCHLORIDE
  5. DEXMEDETOMIDINE. [Concomitant]
     Active Substance: DEXMEDETOMIDINE
  6. PANTOPRAZOLE [Concomitant]
     Active Substance: PANTOPRAZOLE
  7. CARBOPLATIN. [Suspect]
     Active Substance: CARBOPLATIN
     Indication: TRANSPLANT
     Route: 042
  8. DIMENHYDRINATE. [Concomitant]
     Active Substance: DIMENHYDRINATE
  9. AMOXICILLIN. [Concomitant]
     Active Substance: AMOXICILLIN
  10. DIPHENHYDRAMINE. [Concomitant]
     Active Substance: DIPHENHYDRAMINE
  11. METOLAZONE. [Concomitant]
     Active Substance: METOLAZONE
  12. VANCOMYCIN [Concomitant]
     Active Substance: VANCOMYCIN
  13. MYCAMINE [Concomitant]
     Active Substance: MICAFUNGIN SODIUM
  14. PRAZOSIN. [Concomitant]
     Active Substance: PRAZOSIN
  15. TRIMETHOPRIMSULFAMETHOXAZOLE [Concomitant]
     Active Substance: SULFAMETHOXAZOLE\TRIMETHOPRIM
  16. CLONIDINE. [Concomitant]
     Active Substance: CLONIDINE
  17. FLUCONAZOLE. [Concomitant]
     Active Substance: FLUCONAZOLE
  18. MIDAZOLAM (UNKNOWN) [Concomitant]
     Active Substance: MIDAZOLAM HYDROCHLORIDE
  19. POTASSIUM [Concomitant]
     Active Substance: POTASSIUM
  20. SPIRONOLACTONE. [Concomitant]
     Active Substance: SPIRONOLACTONE
  21. AMLODIPINE [Concomitant]
     Active Substance: AMLODIPINE BESYLATE
  22. CEFTAZIDIME. [Concomitant]
     Active Substance: CEFTAZIDIME
  23. ENOXAPARIN [Concomitant]
     Active Substance: ENOXAPARIN
  24. FILGRASTIM [Concomitant]
     Active Substance: FILGRASTIM
  25. KETAMINE (UNKNOWN) [Concomitant]
     Active Substance: KETAMINE
  26. LANSOPRAZOLE. [Concomitant]
     Active Substance: LANSOPRAZOLE
  27. NOREPINEPHRINE. [Concomitant]
     Active Substance: NOREPINEPHRINE
  28. PENTAMIDINE ISETHIONATE INJ 300MG/VIAL BP [Concomitant]
  29. PIPERACILLIN/TAZOBACTAM [Concomitant]
     Active Substance: PIPERACILLIN SODIUM\TAZOBACTAM SODIUM
  30. ACYCLOVIR. [Concomitant]
     Active Substance: ACYCLOVIR
  31. ATROPINE. [Concomitant]
     Active Substance: ATROPINE
  32. CALCIUM + VITAMIN D3 [Concomitant]
     Active Substance: CALCIUM CARBONATE\CHOLECALCIFEROL
  33. FUROSEMIDE. [Concomitant]
     Active Substance: FUROSEMIDE
  34. HYDROCORTISONE. [Concomitant]
     Active Substance: HYDROCORTISONE
  35. HYDROMORPHONE [Concomitant]
     Active Substance: HYDROMORPHONE
  36. LEVETIRACETAM. [Concomitant]
     Active Substance: LEVETIRACETAM
     Route: 065
  37. MELATONIN [Concomitant]
     Active Substance: MELATONIN
  38. METOCLOPRAMIDE. [Concomitant]
     Active Substance: METOCLOPRAMIDE
  39. NABILONE [Concomitant]
     Active Substance: NABILONE
  40. OLANZAPINE. [Concomitant]
     Active Substance: OLANZAPINE
  41. RANITIDINE. [Concomitant]
     Active Substance: RANITIDINE
  42. SOLIRIS [Concomitant]
     Active Substance: ECULIZUMAB
  43. CHOLECALCIFEROL [Concomitant]
     Active Substance: CHOLECALCIFEROL
  44. DOBUTAMINE [Concomitant]
     Active Substance: DOBUTAMINE HYDROCHLORIDE
  45. LORAZEPAM. [Concomitant]
     Active Substance: LORAZEPAM

REACTIONS (10)
  - Acute respiratory failure [Unknown]
  - Intensive care [Unknown]
  - Nausea [Unknown]
  - Hepatic enzyme increased [Unknown]
  - Respiratory distress [Unknown]
  - Venoocclusive liver disease [Unknown]
  - Vomiting [Unknown]
  - Diarrhoea [Unknown]
  - Pneumonitis [Unknown]
  - Cholestasis [Unknown]
